FAERS Safety Report 5002725-6 (Version None)
Quarter: 2006Q2

REPORT INFORMATION
  Report Type: 
  Country: None (occurrence: None)
  Receive Date: 20060516
  Receipt Date: 20060509
  Transmission Date: 20061013
  Serious: Yes (Hospitalization)
  Sender: FDA-Public Use
  Company Number: PHRM2006FR01527

PATIENT
  Age: 79 Year
  Sex: Female

DRUGS (7)
  1. HYZAAR [Suspect]
     Indication: ESSENTIAL HYPERTENSION
     Dosage: 1 DF, QD
     Route: 048
     Dates: end: 20060328
  2. LEVOTHYROX [Concomitant]
     Indication: HYPOTHYROIDISM
     Dosage: 50 UG PER DAY
     Route: 048
  3. EUPANTOL [Concomitant]
     Indication: OESOPHAGITIS
  4. BEFIZAL [Concomitant]
     Indication: LIPIDS ABNORMAL
     Dosage: UNK, UNK
     Route: 048
  5. VASTAREL [Concomitant]
     Indication: DIZZINESS
     Dosage: 20 MG DAILY
     Route: 048
  6. CLARADOL CAFFEINE [Concomitant]
     Route: 048
  7. TEGRETOL [Suspect]
     Indication: TRIGEMINAL NEURALGIA
     Dosage: 100 MG DAILY
     Route: 048
     Dates: start: 20060323, end: 20060326

REACTIONS (7)
  - ASTHENIA [None]
  - FLUID INTAKE RESTRICTION [None]
  - HEADACHE [None]
  - HYPOKALAEMIA [None]
  - HYPONATRAEMIA [None]
  - HYPOVOLAEMIA [None]
  - NAUSEA [None]
